FAERS Safety Report 19444810 (Version 2)
Quarter: 2021Q2

REPORT INFORMATION
  Report Type: Report from Study
  Country: None (occurrence: US)
  Receive Date: 20210621
  Receipt Date: 20210629
  Transmission Date: 20210717
  Serious: Yes (Other)
  Sender: FDA-Public Use
  Company Number: US-ABBVIE-21K-163-3957146-00

PATIENT
  Sex: Female
  Weight: 81.72 kg

DRUGS (2)
  1. RINVOQ [Suspect]
     Active Substance: UPADACITINIB
     Route: 048
     Dates: start: 2021
  2. RINVOQ [Suspect]
     Active Substance: UPADACITINIB
     Indication: RHEUMATOID ARTHRITIS
     Route: 048
     Dates: start: 202102, end: 202103

REACTIONS (3)
  - Pulmonary mass [Unknown]
  - Squamous cell carcinoma [Unknown]
  - Genitourinary melanoma [Recovered/Resolved]

NARRATIVE: CASE EVENT DATE: 2021
